FAERS Safety Report 12555842 (Version 1)
Quarter: 2016Q3

REPORT INFORMATION
  Report Type: Spontaneous
  Country: US (occurrence: None)
  Receive Date: 20160713
  Receipt Date: 20160713
  Transmission Date: 20161109
  Serious: Yes (Disabling)
  Sender: FDA-Public Use
  Company Number: None

PATIENT
  Age: 38 Year
  Sex: Female
  Weight: 63.05 kg

DRUGS (1)
  1. ZOLOFT [Suspect]
     Active Substance: SERTRALINE HYDROCHLORIDE
     Indication: STRESS
     Route: 048
     Dates: end: 20160701

REACTIONS (8)
  - Dyspnoea [None]
  - Movement disorder [None]
  - Extrapyramidal disorder [None]
  - Tremor [None]
  - Grimacing [None]
  - Muscle spasms [None]
  - Tardive dyskinesia [None]
  - Anger [None]

NARRATIVE: CASE EVENT DATE: 20121201
